FAERS Safety Report 26092456 (Version 1)
Quarter: 2025Q4

REPORT INFORMATION
  Report Type: Spontaneous
  Country: US (occurrence: None)
  Receive Date: 20251125
  Receipt Date: 20251125
  Transmission Date: 20260118
  Serious: Yes (Other)
  Sender: FDA-CTU
  Company Number: None

PATIENT

DRUGS (1)
  1. 7-HYDROXYMITRAGYNINE [Suspect]
     Active Substance: 7-HYDROXYMITRAGYNINE
     Indication: Back pain
     Dates: start: 20250823, end: 20251125

REACTIONS (2)
  - Drug dependence [None]
  - Intentional product use issue [None]

NARRATIVE: CASE EVENT DATE: 19251125
